FAERS Safety Report 25469099 (Version 1)
Quarter: 2025Q2

REPORT INFORMATION
  Report Type: Other
  Country: US (occurrence: US)
  Receive Date: 20250623
  Receipt Date: 20250623
  Transmission Date: 20250717
  Serious: No
  Sender: TRAVERE THERAPEUTICS
  Company Number: US-TRAVERE-2025TVT00751

PATIENT
  Age: 51 Year
  Sex: Male

DRUGS (6)
  1. FILSPARI [Suspect]
     Active Substance: SPARSENTAN
     Indication: Acute kidney injury
     Route: 048
     Dates: start: 20240802
  2. FILSPARI [Suspect]
     Active Substance: SPARSENTAN
     Indication: Chronic kidney disease
  3. FILSPARI [Suspect]
     Active Substance: SPARSENTAN
     Indication: Haematuria
  4. FILSPARI [Suspect]
     Active Substance: SPARSENTAN
     Indication: IgA nephropathy
  5. FILSPARI [Suspect]
     Active Substance: SPARSENTAN
     Indication: Proteinuria
  6. FILSPARI [Suspect]
     Active Substance: SPARSENTAN
     Indication: Hyperparathyroidism secondary

REACTIONS (1)
  - Fatigue [None]
